FAERS Safety Report 5553947-7 (Version None)
Quarter: 2007Q4

REPORT INFORMATION
  Report Type: 
  Country: None (occurrence: None)
  Receive Date: 20071213
  Receipt Date: 20071207
  Transmission Date: 20080405
  Serious: Yes (Other)
  Sender: FDA-Public Use
  Company Number: US-ELI_LILLY_AND_COMPANY-US200712002109

PATIENT
  Sex: Female
  Weight: 93.424 kg

DRUGS (10)
  1. BYETTA [Suspect]
     Dosage: 5 UG, 2/D
     Route: 058
     Dates: start: 20061206, end: 20070101
  2. BYETTA [Suspect]
     Dosage: 10 UG, 2/D
     Route: 058
     Dates: start: 20070101
  3. AMARYL [Concomitant]
     Indication: DIABETES MELLITUS
     Dosage: 6 MG, DAILY (1/D)
  4. FUROSEMIDE [Concomitant]
     Indication: CARDIAC FAILURE CONGESTIVE
     Dosage: 40 MG, DAILY (1/D)
  5. IMDUR [Concomitant]
     Indication: CARDIAC FAILURE CONGESTIVE
     Dosage: 30 MG, DAILY (1/D)
  6. COREG [Concomitant]
     Indication: BLOOD PRESSURE
     Dosage: 12.5 MG, 2/D
  7. LISINOPRIL [Concomitant]
     Indication: BLOOD PRESSURE
     Dosage: 2.5 MG, DAILY (1/D)
  8. ASPIRIN [Concomitant]
     Dosage: 81 MG, DAILY (1/D)
  9. MULTI-VITAMIN [Concomitant]
     Dosage: 1 D/F, DAILY (1/D)
  10. TYLENOL EXTRA-STRENGTH [Concomitant]
     Dosage: 500 MG, DAILY (1/D)

REACTIONS (5)
  - CONTUSION [None]
  - FALL [None]
  - METRORRHAGIA [None]
  - UTERINE CANCER [None]
  - UTERINE POLYP [None]
